FAERS Safety Report 12166013 (Version 1)
Quarter: 2016Q1

REPORT INFORMATION
  Report Type: Other
  Country: JP (occurrence: JP)
  Receive Date: 20160309
  Receipt Date: 20160309
  Transmission Date: 20160526
  Serious: Yes (Hospitalization, Other)
  Sender: FDA-Public Use
  Company Number: JP-WARNER CHILCOTT 2012-002344

PATIENT
  Age: 74 Year
  Sex: Female

DRUGS (9)
  1. LOXONIN [Concomitant]
     Active Substance: LOXOPROFEN SODIUM
  2. ALL OTHER THERAPEUTIC PRODUCTS [Concomitant]
     Active Substance: UNSPECIFIED INGREDIENT
  3. MYSLEE [Concomitant]
     Active Substance: ZOLPIDEM TARTRATE
     Dates: start: 20110118, end: 20110118
  4. METHYCOBAL [Concomitant]
     Active Substance: METHYLCOBALAMIN
     Dates: end: 20110127
  5. STOMATIDIN [Concomitant]
     Dates: end: 20110127
  6. OSPAIN [Concomitant]
     Active Substance: ETODOLAC
     Dates: end: 20110127
  7. VOLTAREN [Concomitant]
     Active Substance: DICLOFENAC SODIUM
     Dates: start: 20110118, end: 20110118
  8. ACTONEL [Suspect]
     Active Substance: RISEDRONATE SODIUM
     Indication: OSTEOPOROSIS
     Route: 048
     Dates: start: 200906, end: 20110119
  9. LYRICA [Concomitant]
     Active Substance: PREGABALIN

REACTIONS (8)
  - Fracture delayed union [None]
  - Exostosis [None]
  - Atypical femur fracture [None]
  - Femur fracture [None]
  - Fall [None]
  - Bone pain [None]
  - Limb deformity [None]
  - Bone disorder [None]
